FAERS Safety Report 6789136-8 (Version None)
Quarter: 2010Q2

REPORT INFORMATION
  Report Type: 
  Country: None (occurrence: None)
  Receive Date: 20100623
  Receipt Date: 20080707
  Transmission Date: 20101027
  Serious: No
  Sender: FDA-Public Use
  Company Number: US-PFIZER INC-2008056701

PATIENT
  Sex: Female
  Weight: 89.09 kg

DRUGS (3)
  1. CADUET [Suspect]
     Indication: HYPERTENSION
     Dosage: 10/ 10MG QD EVERY DAY TDD:10/ 10MG
     Dates: start: 20080601
  2. CADUET [Suspect]
     Indication: BLOOD CHOLESTEROL INCREASED
  3. MAXZIDE [Concomitant]

REACTIONS (1)
  - OEDEMA PERIPHERAL [None]
